FAERS Safety Report 4724857-X (Version None)
Quarter: 2005Q3

REPORT INFORMATION
  Report Type: 
  Country: None (occurrence: None)
  Receive Date: 20050726
  Receipt Date: 20050708
  Transmission Date: 20060218
  Serious: Yes (Other)
  Sender: FDA-Public Use
  Company Number: PHEH2005US07638

PATIENT
  Age: 72 Year
  Sex: Female

DRUGS (5)
  1. FEMARA [Suspect]
     Dosage: 2.5 MG, QD
     Route: 048
     Dates: start: 20050401
  2. TAMOXIFEN CITRATE [Suspect]
     Dates: start: 20050401, end: 20050701
  3. LIPITOR [Concomitant]
  4. POTASSIUM CHLORIDE [Concomitant]
     Dosage: UNK, TID
  5. ATENOLOL [Concomitant]

REACTIONS (6)
  - BLINDNESS [None]
  - CUTIS LAXA [None]
  - DRY EYE [None]
  - DRY MOUTH [None]
  - RETINOSCHISIS [None]
  - SKIN WRINKLING [None]
